FAERS Safety Report 8528391-0 (Version None)
Quarter: 2012Q3

REPORT INFORMATION
  Report Type: 
  Country: None (occurrence: None)
  Receive Date: 20120722
  Receipt Date: 20120713
  Transmission Date: 20120928
  Serious: Yes (Hospitalization)
  Sender: FDA-Public Use
  Company Number: PHHY2012GB061971

PATIENT
  Sex: Female

DRUGS (11)
  1. MIRTAZAPINE [Suspect]
  2. BENDROFLUMETHIAZIDE [Concomitant]
  3. PROPRANOLOL [Suspect]
     Dosage: 10 MG
  4. METOCLOPRAMIDE [Concomitant]
  5. FENOFIBRATE [Concomitant]
  6. TETRABENAZINE [Concomitant]
  7. RAMIPRIL [Concomitant]
  8. ACRIVASTINE [Concomitant]
  9. ATORVASTATIN [Concomitant]
  10. OMEPRAZOLE [Concomitant]
  11. BECONASE [Concomitant]

REACTIONS (2)
  - MUSCLE CONTRACTIONS INVOLUNTARY [None]
  - EATING DISORDER [None]
